FAERS Safety Report 12690537 (Version 1)
Quarter: 2016Q3

REPORT INFORMATION
  Report Type: Spontaneous
  Country: IT (occurrence: IT)
  Receive Date: 20160826
  Receipt Date: 20160826
  Transmission Date: 20161109
  Serious: Yes (Other)
  Sender: FDA-Public Use
  Company Number: IT-ELI_LILLY_AND_COMPANY-IT201608008772

PATIENT
  Age: 84 Year
  Sex: Female

DRUGS (4)
  1. CYMBALTA [Suspect]
     Active Substance: DULOXETINE HYDROCHLORIDE
     Indication: ANXIETY DISORDER
     Dosage: 30 MG, UNKNOWN
     Route: 065
     Dates: start: 20160803, end: 20160810
  2. DABIGATRAN [Concomitant]
     Active Substance: DABIGATRAN
  3. EUTIROX [Concomitant]
     Active Substance: LEVOTHYROXINE SODIUM
  4. CYMBALTA [Suspect]
     Active Substance: DULOXETINE HYDROCHLORIDE
     Indication: DEPRESSIVE SYMPTOM
     Dosage: 60 MG, UNKNOWN
     Route: 065
     Dates: end: 20160816

REACTIONS (6)
  - Fatigue [Unknown]
  - Muscle spasms [Unknown]
  - Hypokinesia [Unknown]
  - Dysstasia [Unknown]
  - Pollakiuria [Unknown]
  - Abnormal sleep-related event [Unknown]
